FAERS Safety Report 5224665-X (Version None)
Quarter: 2007Q1

REPORT INFORMATION
  Report Type: 
  Country: None (occurrence: None)
  Receive Date: 20070126
  Receipt Date: 20070112
  Transmission Date: 20070707
  Serious: Yes (Hospitalization)
  Sender: FDA-Public Use
  Company Number: 2005JP001969

PATIENT
  Age: 5 Year
  Sex: Female
  Weight: 19.2 kg

DRUGS (16)
  1. PROTOPIC [Suspect]
     Indication: DERMATITIS ATOPIC
     Dosage: 0.03%,  TOPICAL
     Route: 061
     Dates: start: 20050121, end: 20050620
  2. PROTOPIC [Suspect]
     Indication: DERMATITIS ATOPIC
     Dosage: 0.03%,  TOPICAL
     Route: 061
     Dates: end: 20060302
  3. PROPADERM(BECLOMETASONE DIPROPIONATE) OINTMENT [Suspect]
     Indication: DERMATITIS ATOPIC
     Dosage: 2 G, D, TOPICAL
     Route: 061
  4. ANTEBATE(BETAMETHASONE BUTYRATE PROPIONATE) OINTMENT [Suspect]
     Indication: DERMATITIS ATOPIC
     Dosage: 1 G, D, TOPICAL
     Route: 061
  5. KINDAVATE(CLOBETASONE BUTYRATE) OINTMENT [Suspect]
     Indication: DERMATITIS ATOPIC
     Dosage: 1 G, D, TOPICAL
     Route: 061
  6. PROPETO (WHITE SOFT PARAFFIN) OINTMENT [Concomitant]
  7. LIDOMEX (PREDNISOLONE VALEROACETATE) LOTION [Concomitant]
  8. PREDONINE (PREDNISOLONE) EYE OINTMENT [Concomitant]
  9. ZADITEN (KETOTIFEN FUMARATE) SYRUP [Concomitant]
  10. ZADITEN (KETOTIFEN FUMARATE) NASAL DROP [Concomitant]
  11. POLARAMINE [Concomitant]
  12. ZESULAN (MEQUITAZINE) SYRUP [Concomitant]
  13. ZINC OXIDE (ZINC OXIDE) OINTMENT [Concomitant]
  14. ALMETA (ALCOMETASONE DIPROPIONATE) OINTMENT [Concomitant]
  15. HIRUDOID (HEPARINOID) OINTMENT [Concomitant]
  16. HIRUDOID (HEPARINOID) LOTION [Concomitant]

REACTIONS (4)
  - IMPETIGO [None]
  - INFLUENZA [None]
  - KAPOSI'S VARICELLIFORM ERUPTION [None]
  - PARONYCHIA [None]
